FAERS Safety Report 7552299-0 (Version None)
Quarter: 2011Q2

REPORT INFORMATION
  Report Type: 
  Country: None (occurrence: None)
  Receive Date: 20110616
  Receipt Date: 20110614
  Transmission Date: 20111010
  Serious: Yes (Death)
  Sender: FDA-Public Use
  Company Number: US-B.I. PHARMACEUTICALS,INC./RIDGEFIELD-2010-BP-14088BP

PATIENT
  Sex: Female
  Weight: 57.5 kg

DRUGS (9)
  1. CATAPRES-TTS-1 [Suspect]
     Indication: HYPERTENSION
     Dosage: 0.2 MG
     Route: 061
  2. DIOVAN [Concomitant]
     Dosage: 320 MG
  3. TOPROL-XL [Concomitant]
  4. NEURONTIN [Concomitant]
  5. INSPRA [Concomitant]
     Dosage: 50 MG
  6. ASPIRIN [Concomitant]
     Dosage: 81 MG
  7. LIPITOR [Concomitant]
     Dosage: 80 MG
  8. TIAZAC [Concomitant]
     Dosage: 360 MG
  9. HYDRALAZINE HCL [Concomitant]

REACTIONS (4)
  - CARDIO-RESPIRATORY ARREST [None]
  - SEPSIS [None]
  - CARDIAC ARREST [None]
  - HYPOXIC-ISCHAEMIC ENCEPHALOPATHY [None]
